FAERS Safety Report 12311825 (Version 5)
Quarter: 2016Q2

REPORT INFORMATION
  Report Type: Spontaneous
  Country: US (occurrence: US)
  Receive Date: 20160427
  Receipt Date: 20160614
  Transmission Date: 20160815
  Serious: Yes (Other)
  Sender: FDA-Public Use
  Company Number: US-CELGENEUS-USA-2016046444

PATIENT
  Sex: Male
  Weight: 59.02 kg

DRUGS (3)
  1. REVLIMID [Suspect]
     Active Substance: LENALIDOMIDE
     Indication: PLASMA CELL MYELOMA
     Route: 048
     Dates: start: 20140412
  2. REVLIMID [Suspect]
     Active Substance: LENALIDOMIDE
     Route: 048
     Dates: start: 201606
  3. REVLIMID [Suspect]
     Active Substance: LENALIDOMIDE
     Route: 048
     Dates: start: 201501

REACTIONS (9)
  - Drug dose omission [Not Recovered/Not Resolved]
  - Irritability [Unknown]
  - Aggression [Unknown]
  - Decreased appetite [Not Recovered/Not Resolved]
  - Dizziness [Unknown]
  - Constipation [Unknown]
  - Pain in extremity [Unknown]
  - Asthenia [Not Recovered/Not Resolved]
  - Weight decreased [Unknown]
